FAERS Safety Report 9171909 (Version 5)
Quarter: 2014Q3

REPORT INFORMATION
  Report Type: Spontaneous
  Country: US (occurrence: US)
  Receive Date: 20130319
  Receipt Date: 20140829
  Transmission Date: 20150326
  Serious: Yes (Hospitalization, Disabling, Other)
  Sender: FDA-Public Use
  Company Number: US-009507513-1303USA008364

PATIENT
  Sex: Female
  Weight: 56.69 kg

DRUGS (1)
  1. NUVARING [Suspect]
     Active Substance: ETHINYL ESTRADIOL\ETONOGESTREL
     Indication: CONTRACEPTION
     Dosage: UNK
     Route: 067
     Dates: start: 200901, end: 200910

REACTIONS (12)
  - Rectal haemorrhage [Unknown]
  - Palpitations [Unknown]
  - Anxiety [Unknown]
  - Pilonidal cyst [Unknown]
  - Chest pain [Unknown]
  - Dyspnoea [Unknown]
  - Haematuria [Recovered/Resolved]
  - Urinary tract infection [Unknown]
  - Tachycardia [Unknown]
  - Pilonidal sinus repair [Unknown]
  - Pulmonary embolism [Unknown]
  - Haemorrhoids [Unknown]

NARRATIVE: CASE EVENT DATE: 200910
